FAERS Safety Report 8201595-2 (Version None)
Quarter: 2012Q1

REPORT INFORMATION
  Report Type: 
  Country: None (occurrence: None)
  Receive Date: 20120308
  Receipt Date: 20120221
  Transmission Date: 20120608
  Serious: Yes (Hospitalization)
  Sender: FDA-Public Use
  Company Number: SAN_00045_2012

PATIENT
  Age: 79 Year
  Sex: Male

DRUGS (2)
  1. METFORMIN HCL [Suspect]
     Indication: TYPE 2 DIABETES MELLITUS
     Dosage: (DF)
  2. NSAID'S [Concomitant]

REACTIONS (5)
  - LACTIC ACIDOSIS [None]
  - CONTINUOUS HAEMODIAFILTRATION [None]
  - HYPOGLYCAEMIC COMA [None]
  - RENAL FAILURE [None]
  - DIARRHOEA [None]
